FAERS Safety Report 25682830 (Version 1)
Quarter: 2025Q3

REPORT INFORMATION
  Report Type: Spontaneous
  Country: US (occurrence: US)
  Receive Date: 20250814
  Receipt Date: 20250814
  Transmission Date: 20251020
  Serious: Yes (Death, Life-Threatening, Other)
  Sender: AMGEN
  Company Number: US-AMGEN-USASP2025157288

PATIENT
  Age: 70 Year
  Sex: Male

DRUGS (5)
  1. RITUXIMAB [Suspect]
     Active Substance: RITUXIMAB
     Indication: Hairy cell leukaemia
     Route: 065
  2. CLADRIBINE [Concomitant]
     Active Substance: CLADRIBINE
     Indication: Hairy cell leukaemia
     Route: 065
  3. PENTOSTATIN [Concomitant]
     Active Substance: PENTOSTATIN
     Indication: Hairy cell leukaemia
     Route: 065
  4. DABRAFENIB\TRAMETINIB [Concomitant]
     Active Substance: DABRAFENIB\TRAMETINIB
     Indication: Hairy cell leukaemia
     Route: 065
  5. MOXETUMOMAB PASUDOTOX [Concomitant]
     Active Substance: MOXETUMOMAB PASUDOTOX
     Indication: Hairy cell leukaemia
     Route: 065

REACTIONS (8)
  - Death [Fatal]
  - Haemophagocytic lymphohistiocytosis [Unknown]
  - Septic shock [Unknown]
  - Neutropenic colitis [Unknown]
  - Immune effector cell-associated neurotoxicity syndrome [Unknown]
  - Cytokine release syndrome [Unknown]
  - Pancytopenia [Unknown]
  - Hairy cell leukaemia [Unknown]
